FAERS Safety Report 7537197-0 (Version None)
Quarter: 2011Q2

REPORT INFORMATION
  Report Type: 
  Country: None (occurrence: None)
  Receive Date: 20110609
  Receipt Date: 20110602
  Transmission Date: 20111010
  Serious: Yes (Hospitalization, Other)
  Sender: FDA-Public Use
  Company Number: US-AMGEN-USASP2011026435

PATIENT
  Age: 72 Year
  Sex: Female
  Weight: 73.469 kg

DRUGS (5)
  1. ASPIRIN [Concomitant]
  2. DEXILANT [Concomitant]
  3. BENICAR [Concomitant]
  4. CITRUCEL [Concomitant]
  5. PROLIA [Suspect]
     Indication: PRODUCT USED FOR UNKNOWN INDICATION
     Dosage: 60 MG, ONE TIME DOSE
     Route: 058
     Dates: start: 20101213

REACTIONS (7)
  - RESPIRATORY TRACT INFECTION [None]
  - RENAL CYST [None]
  - HIATUS HERNIA [None]
  - DIVERTICULITIS [None]
  - RECTAL HAEMORRHAGE [None]
  - PAIN [None]
  - DIVERTICULUM INTESTINAL [None]
